FAERS Safety Report 8361913 (Version 5)
Quarter: 2012Q4

REPORT INFORMATION
  Report Type: 
  Country: JP (occurrence: JP)
  Receive Date: 20120130
  Receipt Date: 20121219
  Transmission Date: 20130627
  Serious: Yes (Life-Threatening, Hospitalization, Other)
  Sender: FDA-Public Use
  Company Number: PHHY2012JP006817

PATIENT
  Sex: Male
  Weight: 60 kg

DRUGS (9)
  1. EXJADE [Suspect]
     Indication: IRON OVERLOAD
     Dosage: 500 mg, daily
     Route: 048
     Dates: start: 20120106, end: 20120117
  2. NEORAL [Concomitant]
     Indication: POLYCHONDRITIS
     Dosage: 125 mg, daily
     Route: 048
     Dates: start: 20101028
  3. PREDONINE [Concomitant]
     Dosage: 12.5 mg, UNK
     Dates: start: 20090119
  4. PREDONINE [Concomitant]
     Dosage: 60 mg, UNK
  5. MUCOSTA [Concomitant]
     Indication: POLYCHONDRITIS
     Dosage: 300 mg, UNK
     Route: 048
     Dates: start: 20090116
  6. PARIET [Concomitant]
     Dosage: UNK UKN, UNK
     Route: 048
  7. GLAKAY [Concomitant]
     Route: 048
  8. ONEALFA [Concomitant]
     Route: 048
  9. CALCIUM [Concomitant]

REACTIONS (34)
  - Stevens-Johnson syndrome [Recovering/Resolving]
  - Oral mucosa erosion [Recovering/Resolving]
  - Pyrexia [Recovering/Resolving]
  - Skin mass [Unknown]
  - Drug eruption [Recovering/Resolving]
  - Blood lactate dehydrogenase increased [Unknown]
  - Swelling face [Unknown]
  - Blood blister [Unknown]
  - Rash [Recovering/Resolving]
  - Lip erosion [Unknown]
  - Scab [Unknown]
  - Pharyngeal erosion [Unknown]
  - Oropharyngeal pain [Unknown]
  - Erythema [Recovering/Resolving]
  - Dyspnoea [Unknown]
  - Disseminated intravascular coagulation [Recovered/Resolved]
  - Fibrin D dimer increased [Unknown]
  - Platelet count decreased [Unknown]
  - Lung disorder [Recovered/Resolved]
  - Pneumonia [Unknown]
  - Pulmonary oedema [Unknown]
  - Pneumonia bacterial [Unknown]
  - Pneumonia fungal [Unknown]
  - Chills [Unknown]
  - Hypotension [Unknown]
  - Skin erosion [Unknown]
  - Purpura [Unknown]
  - Blister [Unknown]
  - Genital erosion [Unknown]
  - Oxygen saturation decreased [Unknown]
  - Anaemia [Unknown]
  - Mucosal erosion [Recovering/Resolving]
  - Renal impairment [Unknown]
  - Nausea [Unknown]
